FAERS Safety Report 22194118 (Version 3)
Quarter: 2023Q2

REPORT INFORMATION
  Report Type: Report from Study
  Country: CA (occurrence: CA)
  Receive Date: 20230411
  Receipt Date: 20230630
  Transmission Date: 20230722
  Serious: Yes (Other)
  Sender: FDA-Public Use
  Company Number: CA-JNJFOC-20230355290

PATIENT
  Age: 32 Year
  Sex: Female
  Weight: 89 kg

DRUGS (3)
  1. REMICADE [Suspect]
     Active Substance: INFLIXIMAB
     Indication: Hidradenitis
     Dosage: EXPIRY DATE- 01-SEP-2025
     Route: 041
     Dates: start: 20180627
  2. REMICADE [Suspect]
     Active Substance: INFLIXIMAB
     Indication: Granulomatosis with polyangiitis
     Dosage: LAST DOSE WAS ON 02-FEB-2023
     Route: 041
  3. REMICADE [Suspect]
     Active Substance: INFLIXIMAB
     Route: 041

REACTIONS (7)
  - Granulomatosis with polyangiitis [Unknown]
  - Hidradenitis [Recovering/Resolving]
  - Nasopharyngitis [Unknown]
  - Influenza [Recovering/Resolving]
  - Heart rate increased [Unknown]
  - Wound [Unknown]
  - Therapeutic product effect decreased [Unknown]

NARRATIVE: CASE EVENT DATE: 20230301
